FAERS Safety Report 5215314-5 (Version None)
Quarter: 2007Q1

REPORT INFORMATION
  Report Type: 
  Country: None (occurrence: None)
  Receive Date: 20070116
  Receipt Date: 20070110
  Transmission Date: 20070707
  Serious: Yes (Death, Life-Threatening, Hospitalization)
  Sender: FDA-Public Use
  Company Number: DEWYE362226JUL06

PATIENT
  Age: 66 Year
  Sex: Female

DRUGS (6)
  1. TYGACIL [Suspect]
     Indication: PNEUMONIA
     Dosage: 50 MG 2X PER 1 DAY
     Route: 042
     Dates: start: 20060603, end: 20060609
  2. TAZOBAC (PIPERACILLIN/TAZOBACTAM, INJECTION) [Suspect]
     Indication: PNEUMONIA
     Dates: start: 20060518, end: 20060525
  3. HEPARIN [Concomitant]
  4. ORGARAN [Concomitant]
  5. AVELOX [Concomitant]
  6. MEROPENEM (MEROPENEM) [Concomitant]

REACTIONS (11)
  - CANDIDA PNEUMONIA [None]
  - DRUG INEFFECTIVE [None]
  - HAEMODIALYSIS [None]
  - HEPARIN-INDUCED THROMBOCYTOPENIA [None]
  - HEPATIC FAILURE [None]
  - HYPERBILIRUBINAEMIA [None]
  - LEUKOPENIA [None]
  - RENAL FAILURE [None]
  - RESPIRATORY FAILURE [None]
  - SEPTIC SHOCK [None]
  - STAPHYLOCOCCAL INFECTION [None]
